FAERS Safety Report 9368531 (Version 1)
Quarter: 2013Q2

REPORT INFORMATION
  Report Type: Spontaneous
  Country: FR (occurrence: FR)
  Receive Date: 20130625
  Receipt Date: 20130625
  Transmission Date: 20140414
  Serious: Yes (Hospitalization)
  Sender: FDA-Public Use
  Company Number: FR-BRISTOL-MYERS SQUIBB COMPANY-19025378

PATIENT
  Age: 54 Year
  Sex: Male

DRUGS (3)
  1. COAPROVEL TABS 300MG/ 25MG [Suspect]
     Indication: HYPERTENSION
     Route: 048
     Dates: start: 201211
  2. TEGRETOL [Suspect]
     Indication: EPILEPSY
     Route: 048
     Dates: start: 20130201, end: 20130404
  3. INEXIUM [Suspect]
     Indication: EPILEPSY
     Route: 048

REACTIONS (2)
  - Hyponatraemia [Recovered/Resolved]
  - Convulsion [Recovered/Resolved]
